FAERS Safety Report 6446373-X (Version None)
Quarter: 2009Q4

REPORT INFORMATION
  Report Type: 
  Country: None (occurrence: None)
  Receive Date: 20091110
  Receipt Date: 20090921
  Transmission Date: 20100525
  Serious: No
  Sender: FDA-Public Use
  Company Number: 1000008992

PATIENT
  Age: 83 Year
  Sex: Female

DRUGS (7)
  1. SAVELLA [Suspect]
     Indication: INTERVERTEBRAL DISC DISORDER
     Dosage: 12.5 MG (12.5 MG, 1 IN 1 D), ORAL; 25 MG (12.5 MG, 2 IN 1 D), ORAL
     Route: 048
     Dates: start: 20090919, end: 20090919
  2. SAVELLA [Suspect]
     Indication: INTERVERTEBRAL DISC DISORDER
     Dosage: 12.5 MG (12.5 MG, 1 IN 1 D), ORAL; 25 MG (12.5 MG, 2 IN 1 D), ORAL
     Route: 048
     Dates: start: 20090920
  3. MORPHINE [Concomitant]
  4. OXYCODONE HCL [Concomitant]
  5. PREVACID [Concomitant]
  6. DILANTIN [Concomitant]
  7. LORAZEPAM [Concomitant]

REACTIONS (1)
  - DIZZINESS [None]
